FAERS Safety Report 4589458-5 (Version None)
Quarter: 2005Q1

REPORT INFORMATION
  Report Type: 
  Country: None (occurrence: None)
  Receive Date: 20050216
  Receipt Date: 20050208
  Transmission Date: 20050727
  Serious: Yes (Hospitalization)
  Sender: FDA-Public Use
  Company Number: HQWYE212410FEB05

PATIENT
  Sex: Female

DRUGS (2)
  1. PHENERGAN (PROMETHAZINE HYDROCHLORIDE, SUPPOSITORY, 12.5 MG [Suspect]
     Dosage: RECTAL
     Route: 054
  2. EXCEDRIN (ACETYLSALICYLIC ACID/CAFFEINE/PARACETAMOL/SALICYLAMIDE) [Concomitant]

REACTIONS (1)
  - AMNESIA [None]
